FAERS Safety Report 12164710 (Version 2)
Quarter: 2016Q1

REPORT INFORMATION
  Report Type: Spontaneous
  Country: US (occurrence: US)
  Receive Date: 20160309
  Receipt Date: 20160325
  Transmission Date: 20160526
  Serious: Yes (Other)
  Sender: FDA-Public Use
  Company Number: US-ASTRAZENECA-2016SE22881

PATIENT
  Age: 827 Month
  Sex: Female
  Weight: 87.5 kg

DRUGS (8)
  1. INVOKANA [Concomitant]
     Active Substance: CANAGLIFLOZIN
  2. AMLODIPINE [Concomitant]
     Active Substance: AMLODIPINE BESYLATE
     Indication: BLOOD PRESSURE INCREASED
  3. BYDUREON [Suspect]
     Active Substance: EXENATIDE
     Indication: TYPE 2 DIABETES MELLITUS
     Route: 058
     Dates: end: 201512
  4. LEVAMIR [Concomitant]
     Dosage: 20 UNITS TWICE A DAY
  5. LEVAMIR [Concomitant]
     Dosage: 25 UNITS TWICE A DAY, AFTER BYDUREON DID NOT RECEIVE
  6. INSULIN [Concomitant]
     Active Substance: INSULIN NOS
     Indication: DIABETES MELLITUS
  7. BYDUREON [Suspect]
     Active Substance: EXENATIDE
     Indication: TYPE 2 DIABETES MELLITUS
     Route: 058
     Dates: start: 2015, end: 201510
  8. LISINOPRIL. [Suspect]
     Active Substance: LISINOPRIL
     Route: 048

REACTIONS (6)
  - Hypertension [Unknown]
  - Weight increased [Not Recovered/Not Resolved]
  - Blood glucose increased [Unknown]
  - Drug dose omission [Unknown]
  - Glycosylated haemoglobin increased [Not Recovered/Not Resolved]
  - Weight decreased [Recovered/Resolved]

NARRATIVE: CASE EVENT DATE: 201510
